FAERS Safety Report 6822284-2 (Version None)
Quarter: 2010Q3

REPORT INFORMATION
  Report Type: 
  Country: None (occurrence: None)
  Receive Date: 20100708
  Receipt Date: 20100624
  Transmission Date: 20110219
  Serious: Yes (Hospitalization)
  Sender: FDA-Public Use
  Company Number: US-ELI_LILLY_AND_COMPANY-US201006006977

PATIENT
  Sex: Male

DRUGS (13)
  1. FORTEO [Suspect]
     Dosage: 20 UG, DAILY (1/D)
     Dates: start: 20100528
  2. HUMALOG [Suspect]
     Indication: DIABETES MELLITUS
  3. BENAZEPRIL HYDROCHLORIDE [Concomitant]
     Dosage: 40 MG, UNKNOWN
  4. CARVEDILOL [Concomitant]
     Dosage: 6.25 MG, UNKNOWN
  5. FLUOXETINE [Concomitant]
     Dosage: 40 MG, UNKNOWN
  6. FEXOFENADINE [Concomitant]
     Dosage: 180 MG, UNKNOWN
  7. FUROSEMIDE [Concomitant]
  8. GEMFIBROZIL [Concomitant]
     Dosage: 600 MG, UNKNOWN
  9. HUMALOG [Concomitant]
  10. ISOSORBIDE MONONITRATE [Concomitant]
  11. OMEPRAZOLE [Concomitant]
  12. SPIRONOLACTONE [Concomitant]
     Dosage: 25 MG, UNKNOWN
  13. AMBIEN [Concomitant]
     Dosage: 10 MG, UNKNOWN

REACTIONS (3)
  - MYOCARDIAL INFARCTION [None]
  - OEDEMA PERIPHERAL [None]
  - OFF LABEL USE [None]
